FAERS Safety Report 16044169 (Version 5)
Quarter: 2019Q3

REPORT INFORMATION
  Report Type: Report from Study
  Country: US (occurrence: US)
  Receive Date: 20190306
  Receipt Date: 20190809
  Transmission Date: 20191004
  Serious: Yes (Hospitalization)
  Sender: FDA-Public Use
  Company Number: US-ACTELION-A-NJ2018-173509

PATIENT
  Age: 83 Year
  Sex: Female
  Weight: 56.69 kg

DRUGS (5)
  1. WARFARIN [Concomitant]
     Active Substance: WARFARIN
  2. OPSUMIT [Suspect]
     Active Substance: MACITENTAN
     Indication: PULMONARY ARTERIAL HYPERTENSION
     Dosage: 10 MG, QD
     Route: 048
     Dates: start: 201511
  3. APTIOM [Suspect]
     Active Substance: ESLICARBAZEPINE ACETATE
     Indication: PRODUCT USED FOR UNKNOWN INDICATION
     Dosage: UNK
     Route: 065
     Dates: start: 20190731
  4. ELIQUIS [Concomitant]
     Active Substance: APIXABAN
  5. UPTRAVI [Concomitant]
     Active Substance: SELEXIPAG
     Indication: PULMONARY ARTERIAL HYPERTENSION
     Route: 048

REACTIONS (23)
  - Glaucoma [Unknown]
  - Back pain [Unknown]
  - Pneumonia [Unknown]
  - Headache [Unknown]
  - Blood potassium decreased [Unknown]
  - Restless legs syndrome [Unknown]
  - Fatigue [Unknown]
  - Fall [Unknown]
  - Therapy change [Unknown]
  - Tension [Unknown]
  - Somnolence [Unknown]
  - Hypertension [Unknown]
  - Haemorrhage [Unknown]
  - Bronchitis [Unknown]
  - Back injury [Unknown]
  - Hypotension [Unknown]
  - Thrombosis [Unknown]
  - Anaemia [Unknown]
  - Lung disorder [Unknown]
  - Hospitalisation [Unknown]
  - Pleural effusion [Unknown]
  - Blood cholesterol increased [Unknown]
  - Dyspnoea [Unknown]

NARRATIVE: CASE EVENT DATE: 201806
